FAERS Safety Report 4910413-7 (Version None)
Quarter: 2006Q1

REPORT INFORMATION
  Report Type: 
  Country: None (occurrence: None)
  Receive Date: 20060209
  Receipt Date: 20060127
  Transmission Date: 20060701
  Serious: Yes (Hospitalization)
  Sender: FDA-Public Use
  Company Number: 200610541BWH

PATIENT
  Age: 72 Year
  Sex: Male
  Weight: 61.2356 kg

DRUGS (4)
  1. SORAFENIB [Suspect]
     Indication: METASTATIC RENAL CELL CARCINOMA
     Dosage: 400 MG, BID, ORAL
     Route: 048
     Dates: start: 20060109
  2. ALLOPURINOL [Concomitant]
  3. PREVACID [Concomitant]
  4. VITAMIN B-12 [Concomitant]

REACTIONS (5)
  - BLOOD SODIUM DECREASED [None]
  - CAROTID ARTERY STENOSIS [None]
  - SINUS TACHYCARDIA [None]
  - TRANSIENT ISCHAEMIC ATTACK [None]
  - WHITE BLOOD CELL COUNT INCREASED [None]
